FAERS Safety Report 20401912 (Version 2)
Quarter: 2022Q1

REPORT INFORMATION
  Report Type: Spontaneous
  Country: US (occurrence: US)
  Receive Date: 20220131
  Receipt Date: 20220201
  Transmission Date: 20220423
  Serious: Yes (Other)
  Sender: FDA-Public Use
  Company Number: US-ABBVIE-21K-163-4136705-00

PATIENT
  Age: 40 Year
  Sex: Female

DRUGS (5)
  1. HUMIRA [Suspect]
     Active Substance: ADALIMUMAB
     Indication: Ankylosing spondylitis
     Route: 058
     Dates: start: 2009, end: 2018
  2. COSENTYX [Suspect]
     Active Substance: SECUKINUMAB
     Indication: Ankylosing spondylitis
     Route: 065
  3. RESTASIS [Suspect]
     Active Substance: CYCLOSPORINE
     Indication: Iritis
     Dosage: STARTED ON 2015 OR BEFORE
     Route: 065
  4. RESTASIS [Suspect]
     Active Substance: CYCLOSPORINE
     Indication: Dry eye
  5. RESTASIS [Suspect]
     Active Substance: CYCLOSPORINE
     Indication: Eye inflammation

REACTIONS (5)
  - Lupus-like syndrome [Recovered/Resolved]
  - Back disorder [Unknown]
  - Neuroma [Unknown]
  - Joint swelling [Unknown]
  - Eye inflammation [Unknown]
